FAERS Safety Report 10576510 (Version 1)
Quarter: 2014Q4

REPORT INFORMATION
  Report Type: Spontaneous
  Country: BR (occurrence: BR)
  Receive Date: 20141111
  Receipt Date: 20141111
  Transmission Date: 20150529
  Serious: No
  Sender: FDA-Public Use
  Company Number: BR-JNJFOC-20141020949

PATIENT
  Age: 87 Year
  Sex: Female
  Weight: 54 kg

DRUGS (6)
  1. ROHYDORM [Concomitant]
     Indication: SLEEP DISORDER THERAPY
     Route: 065
  2. MONOCORDIL [Concomitant]
     Active Substance: ISOSORBIDE MONONITRATE
     Indication: CARDIAC DISORDER
     Route: 065
     Dates: start: 2009
  3. HALDOL [Suspect]
     Active Substance: HALOPERIDOL
     Indication: AGITATION
     Route: 065
     Dates: start: 20141024, end: 20141029
  4. PHENERGAN [Concomitant]
     Active Substance: PROMETHAZINE HYDROCHLORIDE
     Indication: AGITATION
     Route: 065
     Dates: start: 20141024
  5. LOSARTAN [Concomitant]
     Active Substance: LOSARTAN
     Indication: BLOOD PRESSURE
     Route: 065
     Dates: start: 2009
  6. HALDOL [Suspect]
     Active Substance: HALOPERIDOL
     Indication: REPETITIVE SPEECH
     Route: 065
     Dates: start: 20141024, end: 20141029

REACTIONS (4)
  - Tongue disorder [Recovering/Resolving]
  - Sedation [Recovering/Resolving]
  - Fatigue [Recovering/Resolving]
  - Deformity [Recovering/Resolving]

NARRATIVE: CASE EVENT DATE: 20141024
